FAERS Safety Report 11364209 (Version 4)
Quarter: 2015Q4

REPORT INFORMATION
  Report Type: Report from Study
  Country: EC (occurrence: EC)
  Receive Date: 20150811
  Receipt Date: 20151112
  Transmission Date: 20160304
  Serious: Yes (Hospitalization)
  Sender: FDA-Public Use
  Company Number: PHHY2015EC096508

PATIENT
  Age: 8 Year
  Sex: Male
  Weight: 22.5 kg

DRUGS (2)
  1. EXJADE [Suspect]
     Active Substance: DEFERASIROX
     Dosage: 10 MG/KG, QD (250 MG, QD)
     Route: 048
     Dates: start: 20151005
  2. EXJADE [Suspect]
     Active Substance: DEFERASIROX
     Indication: SICKLE CELL ANAEMIA
     Dosage: 20 MG/KG, QD (500 MG, QD)
     Route: 048
     Dates: start: 20140717, end: 20151004

REACTIONS (5)
  - Haematocrit decreased [Recovering/Resolving]
  - Back pain [Recovered/Resolved]
  - Red blood cell count decreased [Recovered/Resolved]
  - Full blood count decreased [Not Recovered/Not Resolved]
  - Serum ferritin increased [Unknown]

NARRATIVE: CASE EVENT DATE: 20150717
